FAERS Safety Report 8267543-4 (Version None)
Quarter: 2012Q2

REPORT INFORMATION
  Report Type: 
  Country: None (occurrence: None)
  Receive Date: 20120404
  Receipt Date: 20120320
  Transmission Date: 20120825
  Serious: Yes (Hospitalization, Other)
  Sender: FDA-Public Use
  Company Number: FK201200908

PATIENT
  Sex: Male

DRUGS (1)
  1. EPIRUBICIN [Suspect]
     Indication: BREAST CANCER

REACTIONS (7)
  - VENTRICULAR HYPOKINESIA [None]
  - FOETAL EXPOSURE DURING PREGNANCY [None]
  - CAESAREAN SECTION [None]
  - KLEBSIELLA TEST POSITIVE [None]
  - PYREXIA [None]
  - WHITE BLOOD CELL COUNT INCREASED [None]
  - STAPHYLOCOCCUS TEST POSITIVE [None]
